FAERS Safety Report 20429801 (Version 4)
Quarter: 2022Q2

REPORT INFORMATION
  Report Type: Spontaneous
  Country: US (occurrence: US)
  Receive Date: 20220204
  Receipt Date: 20220423
  Transmission Date: 20220721
  Serious: Yes (Hospitalization, Other)
  Sender: FDA-Public Use
  Company Number: US-UNITED THERAPEUTICS-UNT-2022-001511

PATIENT
  Age: 14 Year
  Sex: Female

DRUGS (11)
  1. REMODULIN [Suspect]
     Active Substance: TREPROSTINIL
     Indication: Pulmonary arterial hypertension
     Dosage: UNK, CONTINUING
     Route: 041
     Dates: start: 20210817
  2. REMODULIN [Suspect]
     Active Substance: TREPROSTINIL
     Dosage: 0.014 ?G/KG, CONTINUING
     Route: 041
  3. REMODULIN [Suspect]
     Active Substance: TREPROSTINIL
     Dosage: 0.016 ?G/KG, CONTINUING
     Route: 041
     Dates: end: 20220222
  4. UPTRAVI [Suspect]
     Active Substance: SELEXIPAG
     Indication: Pulmonary arterial hypertension
     Dosage: 200 ?G, BID
     Route: 048
     Dates: start: 20220107
  5. UPTRAVI [Suspect]
     Active Substance: SELEXIPAG
     Dosage: 1600 ?G, BID
     Route: 048
     Dates: end: 202201
  6. CHLORAPREP [Suspect]
     Active Substance: CHLORHEXIDINE GLUCONATE\ISOPROPYL ALCOHOL
     Indication: Product used for unknown indication
     Dosage: UNK
     Route: 065
     Dates: end: 20220222
  7. XARELTO [Suspect]
     Active Substance: RIVAROXABAN
     Indication: Prophylaxis
     Dosage: 10 MG DAILY
     Route: 065
     Dates: start: 20211203
  8. OPSUMIT [Concomitant]
     Active Substance: MACITENTAN
     Indication: Pulmonary arterial hypertension
     Dosage: 10 MG, QD (1 TIME EVERY 1 DAY)
     Route: 048
     Dates: start: 20211006
  9. TADALAFIL [Concomitant]
     Active Substance: TADALAFIL
     Indication: Product used for unknown indication
     Dosage: 20 MG, QD
     Route: 048
  10. LASIX [Concomitant]
     Active Substance: FUROSEMIDE
     Indication: Product used for unknown indication
     Dosage: 20 MG, QD
     Route: 048
  11. ALBUTEROL [Concomitant]
     Active Substance: ALBUTEROL
     Indication: Asthma
     Dosage: 90 MCG/ACT (INHALE 2 PUFFS EVERY SIX (6) HOURS AS NEEDED), PRN

REACTIONS (24)
  - Menometrorrhagia [Recovered/Resolved]
  - Pulmonary arterial hypertension [Not Recovered/Not Resolved]
  - Anaemia [Unknown]
  - Vascular device infection [Recovered/Resolved]
  - Thrombosis in device [Not Recovered/Not Resolved]
  - Device related thrombosis [Recovered/Resolved]
  - COVID-19 pneumonia [Unknown]
  - Injection site pain [Recovered/Resolved]
  - Injection site vesicles [Recovered/Resolved]
  - Injection site discharge [Unknown]
  - Purulent discharge [Unknown]
  - Injection site haemorrhage [Unknown]
  - Dermatitis contact [Recovered/Resolved]
  - Injection site swelling [Recovered/Resolved]
  - Injection site erythema [Recovered/Resolved]
  - Tachycardia [Unknown]
  - Device use issue [Unknown]
  - Hypophagia [Unknown]
  - Electrolyte imbalance [Recovered/Resolved]
  - Blood potassium decreased [Recovered/Resolved]
  - Blood calcium decreased [Recovered/Resolved]
  - Ovarian cyst [Unknown]
  - Catheter site irritation [Unknown]
  - Conjunctival pallor [Unknown]

NARRATIVE: CASE EVENT DATE: 20210820
